FAERS Safety Report 21119756 (Version 1)
Quarter: 2022Q3

REPORT INFORMATION
  Report Type: Spontaneous
  Country: FR (occurrence: FR)
  Receive Date: 20220722
  Receipt Date: 20220722
  Transmission Date: 20221027
  Serious: Yes (Other)
  Sender: FDA-Public Use
  Company Number: None

PATIENT
  Age: 35 Year
  Sex: Male

DRUGS (3)
  1. PREGABALIN [Suspect]
     Active Substance: PREGABALIN
     Indication: Product used for unknown indication
     Dosage: UNK , BID (300 MILLIGRAM IN THE MORNING, 250 MILLIGRAM IN THE EVENING)
     Route: 065
  2. DIAZEPAM [Suspect]
     Active Substance: DIAZEPAM
     Indication: Product used for unknown indication
     Dosage: 60 MILLIGRAM, QD (60 MG/D)
     Route: 048
  3. COCAINE [Suspect]
     Active Substance: COCAINE
     Indication: Product used for unknown indication
     Dosage: UNK, MONTHLY (1-2 GRAM/MONTH)
     Route: 065

REACTIONS (1)
  - Drug dependence [Not Recovered/Not Resolved]
